FAERS Safety Report 20181677 (Version 1)
Quarter: 2021Q4

REPORT INFORMATION
  Report Type: Spontaneous
  Country: US (occurrence: None)
  Receive Date: 20211214
  Receipt Date: 20211214
  Transmission Date: 20220304
  Serious: No
  Sender: FDA-Public Use
  Company Number: None

PATIENT
  Age: 58 Year
  Sex: Male

DRUGS (1)
  1. MAVYRET [Suspect]
     Active Substance: GLECAPREVIR\PIBRENTASVIR
     Dosage: OTHER QUANTITY : 100-40MG;?FREQUENCY : DAILY;?
     Route: 048
     Dates: start: 202111

REACTIONS (3)
  - Chest pain [None]
  - Poor quality sleep [None]
  - Fatigue [None]

NARRATIVE: CASE EVENT DATE: 20211207
